FAERS Safety Report 7026944-2 (Version None)
Quarter: 2010Q4

REPORT INFORMATION
  Report Type: 
  Country: None (occurrence: None)
  Receive Date: 20101004
  Receipt Date: 20100928
  Transmission Date: 20110411
  Serious: Yes (Death)
  Sender: FDA-Public Use
  Company Number: B0677381A

PATIENT
  Sex: Female

DRUGS (4)
  1. TYKERB [Suspect]
     Indication: BREAST CANCER
     Dosage: 1250MG PER DAY
     Route: 048
     Dates: start: 20100409, end: 20100915
  2. XELODA [Concomitant]
     Dosage: 1000MG PER DAY
     Route: 048
     Dates: start: 20100409, end: 20100416
  3. MS CONTIN [Concomitant]
     Route: 048
  4. SENNOSIDE [Concomitant]
     Route: 048

REACTIONS (1)
  - LYMPHANGIOSIS CARCINOMATOSA [None]
